FAERS Safety Report 18305653 (Version 1)
Quarter: 2020Q3

REPORT INFORMATION
  Report Type: Spontaneous
  Country: US (occurrence: US)
  Receive Date: 20200924
  Receipt Date: 20200924
  Transmission Date: 20201103
  Serious: Yes (Other)
  Sender: FDA-Public Use
  Company Number: US-CELLTRION INC.-2020US026784

PATIENT

DRUGS (4)
  1. RITUXIMAB (UNKNOWN) [Suspect]
     Active Substance: RITUXIMAB
     Indication: GLYCOGEN STORAGE DISEASE TYPE II
     Dosage: 375 MG/M2, FOUR DOSES 1/WEEK
     Route: 042
  2. METHOTREXATE. [Suspect]
     Active Substance: METHOTREXATE
     Indication: GLYCOGEN STORAGE DISEASE TYPE II
     Dosage: 0.4 MG/KG; THREE DOSES PER CYCLE WITH FIRST THREE ERT
     Route: 065
  3. ALGLUCOSIDASE ALFA RECOMBINANT [Suspect]
     Active Substance: ALGLUCOSIDASE ALFA
     Indication: GLYCOGEN STORAGE DISEASE TYPE II
     Dosage: 20 MG/KG, EVERY OTHER WEEK
  4. IMMUNOGLOBULIN I.V [Suspect]
     Active Substance: HUMAN IMMUNOGLOBULIN G
     Indication: IMMUNISATION
     Dosage: 500 MG/KG MONTHLY

REACTIONS (7)
  - Rhinovirus infection [Recovered/Resolved]
  - Off label use [Unknown]
  - Drug effective for unapproved indication [Unknown]
  - Enterovirus infection [Recovered/Resolved]
  - Pneumonia aspiration [Recovered/Resolved]
  - Aspartate aminotransferase increased [Recovered/Resolved]
  - Product use issue [Unknown]
